FAERS Safety Report 24605958 (Version 1)
Quarter: 2024Q4

REPORT INFORMATION
  Report Type: Report from Study
  Country: CA (occurrence: CA)
  Receive Date: 20241111
  Receipt Date: 20241111
  Transmission Date: 20250115
  Serious: Yes (Other)
  Sender: ABBVIE
  Company Number: CA-ABBVIE-5982424

PATIENT
  Sex: Male

DRUGS (1)
  1. SKYRIZI [Suspect]
     Active Substance: RISANKIZUMAB-RZAA
     Indication: Crohn^s disease
     Route: 058
     Dates: start: 20230817

REACTIONS (5)
  - Intestinal anastomosis [Unknown]
  - Inflammatory bowel disease [Unknown]
  - Hepatic lesion [Unknown]
  - Enterocutaneous fistula [Unknown]
  - Intestinal fistula [Unknown]
